FAERS Safety Report 21850320 (Version 2)
Quarter: 2023Q1

REPORT INFORMATION
  Report Type: Report from Study
  Country: US (occurrence: US)
  Receive Date: 20230111
  Receipt Date: 20230117
  Transmission Date: 20230418
  Serious: Yes (Other)
  Sender: FDA-Public Use
  Company Number: US-ABBVIE-4264096

PATIENT
  Age: 61 Year
  Sex: Female

DRUGS (1)
  1. RINVOQ [Suspect]
     Active Substance: UPADACITINIB
     Indication: Rheumatoid arthritis
     Route: 048
     Dates: start: 20210118

REACTIONS (8)
  - Systemic lupus erythematosus [Not Recovered/Not Resolved]
  - Hand deformity [Unknown]
  - Osteopenia [Not Recovered/Not Resolved]
  - Balance disorder [Unknown]
  - Arthralgia [Unknown]
  - Haemorrhage [Unknown]
  - Back pain [Unknown]
  - Head injury [Unknown]

NARRATIVE: CASE EVENT DATE: 20230101
